FAERS Safety Report 23629041 (Version 1)
Quarter: 2024Q1

REPORT INFORMATION
  Report Type: Spontaneous
  Country: US (occurrence: US)
  Receive Date: 20240313
  Receipt Date: 20240313
  Transmission Date: 20240410
  Serious: Yes (Other)
  Sender: FDA-Public Use
  Company Number: US-FreseniusKabi-FK202404006

PATIENT
  Age: 40 Year
  Sex: Male

DRUGS (3)
  1. FENTANYL [Suspect]
     Active Substance: FENTANYL\FENTANYL CITRATE
     Indication: Meningioma surgery
     Route: 040
  2. PROPOFOL [Concomitant]
     Active Substance: PROPOFOL
     Indication: Meningioma surgery
     Route: 042
  3. DEXMEDETOMIDINE [Concomitant]
     Active Substance: DEXMEDETOMIDINE
     Indication: Meningioma surgery

REACTIONS (1)
  - Acute chest syndrome [Recovering/Resolving]
